FAERS Safety Report 5452770-1 (Version None)
Quarter: 2007Q3

REPORT INFORMATION
  Report Type: 
  Country: None (occurrence: None)
  Receive Date: 20070914
  Receipt Date: 20070904
  Transmission Date: 20080115
  Serious: Yes (Hospitalization)
  Sender: FDA-Public Use
  Company Number: NL-ROCHE-515151

PATIENT
  Age: 45 Year
  Sex: Female
  Weight: 72 kg

DRUGS (1)
  1. XELODA [Suspect]
     Dosage: DOSAGE REGIMEN REPORTED AS 2000/1000 FOR TWO WEEKS, AFTERWARDS 1 WEEK REST.
     Route: 065
     Dates: start: 20070531, end: 20070821

REACTIONS (1)
  - PANCREATITIS ACUTE [None]
